FAERS Safety Report 15347241 (Version 1)
Quarter: 2018Q3

REPORT INFORMATION
  Report Type: Spontaneous
  Country: US (occurrence: US)
  Receive Date: 20180829
  Receipt Date: 20180829
  Transmission Date: 20181010
  Serious: Yes (Life-Threatening, Hospitalization, Other)
  Sender: FDA-Public Use
  Company Number: None

PATIENT
  Age: 37 Year
  Sex: Female
  Weight: 78.75 kg

DRUGS (1)
  1. CYTOTEC [Suspect]
     Active Substance: MISOPROSTOL
     Indication: LABOUR INDUCTION
     Route: 067
     Dates: start: 20160712, end: 20160714

REACTIONS (4)
  - Abdominal pain [None]
  - Uterine rupture [None]
  - Maternal exposure during pregnancy [None]
  - Delivery [None]

NARRATIVE: CASE EVENT DATE: 20160714
